FAERS Safety Report 20814307 (Version 1)
Quarter: 2022Q2

REPORT INFORMATION
  Report Type: Spontaneous
  Country: US (occurrence: None)
  Receive Date: 20220510
  Receipt Date: 20220510
  Transmission Date: 20220721
  Serious: Yes (Hospitalization)
  Sender: FDA-Public Use
  Company Number: None

PATIENT
  Age: 71 Year
  Sex: Female
  Weight: 83.25 kg

DRUGS (6)
  1. REPATHA [Suspect]
     Active Substance: EVOLOCUMAB
     Indication: Low density lipoprotein increased
     Dosage: OTHER QUANTITY : 1 INJECTION(S);?OTHER FREQUENCY : 14 DAYS;?
     Route: 030
     Dates: start: 20220330
  2. REPATHA [Concomitant]
     Active Substance: EVOLOCUMAB
  3. COZAAR [Concomitant]
     Active Substance: LOSARTAN POTASSIUM
  4. VITAMIN D NOS [Concomitant]
     Active Substance: VITAMIN D NOS
  5. MAGNESIUM [Concomitant]
     Active Substance: MAGNESIUM
  6. ZINC [Concomitant]
     Active Substance: ZINC

REACTIONS (3)
  - Cerebrovascular accident [None]
  - Thrombosis [None]
  - Urinary tract infection [None]

NARRATIVE: CASE EVENT DATE: 20220504
